FAERS Safety Report 19802789 (Version 1)
Quarter: 2021Q3

REPORT INFORMATION
  Report Type: Spontaneous
  Country: FR (occurrence: FR)
  Receive Date: 20210908
  Receipt Date: 20210908
  Transmission Date: 20211014
  Serious: Yes (Other)
  Sender: FDA-Public Use
  Company Number: NVSC2021FR200696

PATIENT
  Age: 35 Year
  Sex: Male
  Weight: 60.7 kg

DRUGS (5)
  1. TEGRETOL [Suspect]
     Active Substance: CARBAMAZEPINE
     Indication: AGITATION
     Dosage: 200 MG, BID
     Route: 048
     Dates: start: 20210726, end: 20210728
  2. TARGOCID [Suspect]
     Active Substance: TEICOPLANIN
     Indication: OSTEITIS
     Dosage: 500 MG, QD
     Route: 042
     Dates: start: 20210624, end: 20210815
  3. DEPAKINE [Suspect]
     Active Substance: VALPROATE SODIUM
     Indication: AGITATION
     Dosage: 200 MG, BID
     Route: 048
     Dates: start: 20210726, end: 20210728
  4. PROPRANOLOL [Suspect]
     Active Substance: PROPRANOLOL HYDROCHLORIDE
     Indication: OSTEITIS
     Dosage: UNK
     Route: 048
     Dates: start: 202107, end: 20210816
  5. CEFEPIME [Suspect]
     Active Substance: CEFEPIME HYDROCHLORIDE
     Indication: OSTEITIS
     Dosage: 2 G (TOTAL)
     Route: 042
     Dates: start: 20210724

REACTIONS (1)
  - Agranulocytosis [Not Recovered/Not Resolved]

NARRATIVE: CASE EVENT DATE: 20210727
